FAERS Safety Report 7250269-3 (Version None)
Quarter: 2011Q1

REPORT INFORMATION
  Report Type: 
  Country: None (occurrence: None)
  Receive Date: 20110128
  Receipt Date: 20110124
  Transmission Date: 20110831
  Serious: Yes (Hospitalization, Other)
  Sender: FDA-Public Use
  Company Number: FR-PFIZER INC-2011005467

PATIENT
  Age: 51 Year
  Sex: Female

DRUGS (6)
  1. VALIUM [Suspect]
     Indication: ANXIETY
     Dosage: 10 MG, 3X/DAY
     Route: 048
     Dates: end: 20100606
  2. ATARAX [Concomitant]
     Dosage: 100(UNITS NOT PROVIDED) 0.5 DOSAGE FORM DAILY
  3. LARGACTIL [Concomitant]
     Dosage: 0.5 DOSAGE FORM DAILY
  4. SULFARLEM [Concomitant]
     Dosage: UNK
  5. EFFEXOR XR [Suspect]
     Indication: DEPRESSION
     Dosage: 75 MG, 2X/DAY
     Route: 048
  6. ESPERAL [Concomitant]
     Dosage: UNK

REACTIONS (12)
  - SOMNAMBULISM [None]
  - INSOMNIA [None]
  - CONFUSIONAL STATE [None]
  - URINARY TRACT INFECTION [None]
  - MALNUTRITION [None]
  - SLEEP PHASE RHYTHM DISTURBANCE [None]
  - PRODUCTIVE COUGH [None]
  - OVERDOSE [None]
  - DISORIENTATION [None]
  - ATAXIA [None]
  - ROAD TRAFFIC ACCIDENT [None]
  - SPEECH DISORDER [None]
